FAERS Safety Report 20769037 (Version 4)
Quarter: 2022Q3

REPORT INFORMATION
  Report Type: Spontaneous
  Country: US (occurrence: US)
  Receive Date: 20220429
  Receipt Date: 20220905
  Transmission Date: 20221026
  Serious: Yes (Hospitalization, Other)
  Sender: FDA-Public Use
  Company Number: US-CELGENE-USA-20220204366

PATIENT
  Age: 65 Year
  Sex: Female

DRUGS (6)
  1. REVLIMID [Suspect]
     Active Substance: LENALIDOMIDE
     Indication: Plasma cell myeloma
     Dosage: 25 MILLIGRAM
     Route: 048
     Dates: start: 20210317
  2. REVLIMID [Suspect]
     Active Substance: LENALIDOMIDE
     Dosage: 25 MILLIGRAM
     Route: 048
     Dates: start: 20211027
  3. REVLIMID [Suspect]
     Active Substance: LENALIDOMIDE
     Dosage: 10 MILLIGRAM
     Route: 048
     Dates: start: 202111
  4. REVLIMID [Suspect]
     Active Substance: LENALIDOMIDE
     Dosage: 10 MILLIGRAM
     Route: 048
     Dates: start: 202112
  5. REVLIMID [Suspect]
     Active Substance: LENALIDOMIDE
     Dosage: ON DAYS 1-14 EVERY 21 DAY CYCLE
     Route: 048
  6. REVLIMID [Suspect]
     Active Substance: LENALIDOMIDE
     Dosage: TOOK 1 CAPSULE BY MOUTH DAILY ON DAYS 1-14 EVERY 21 DAY CYCLE
     Route: 048
     Dates: start: 20210317

REACTIONS (5)
  - Pneumonia [Recovered/Resolved]
  - Product dose omission issue [Unknown]
  - Full blood count abnormal [Unknown]
  - Platelet count decreased [Unknown]
  - Off label use [Unknown]
